FAERS Safety Report 23125886 (Version 1)
Quarter: 2023Q4

REPORT INFORMATION
  Report Type: Spontaneous
  Country: US (occurrence: None)
  Receive Date: 20231030
  Receipt Date: 20231030
  Transmission Date: 20240110
  Serious: No
  Sender: FDA-Public Use
  Company Number: None

PATIENT
  Age: 38 Year
  Sex: Female

DRUGS (1)
  1. METHYLPREDNISOLONE [Suspect]
     Active Substance: METHYLPREDNISOLONE
     Indication: Multiple sclerosis
     Dosage: FREQUENCY : DAILY;?
     Route: 042
     Dates: start: 20231027, end: 20231028

REACTIONS (3)
  - Flushing [None]
  - Feeling hot [None]
  - Infusion related reaction [None]

NARRATIVE: CASE EVENT DATE: 20231028
